FAERS Safety Report 11374929 (Version 1)
Quarter: 2015Q3

REPORT INFORMATION
  Report Type: Spontaneous
  Country: US (occurrence: None)
  Receive Date: 20150812
  Receipt Date: 20150812
  Transmission Date: 20151125
  Serious: Yes (Hospitalization)
  Sender: FDA-Public Use
  Company Number: None

PATIENT
  Age: 67 Year
  Sex: Male
  Weight: 77 kg

DRUGS (2)
  1. SIMEPREVIR [Suspect]
     Active Substance: SIMEPREVIR
     Route: 048
     Dates: start: 20150201
  2. SOFOSBUVIR [Suspect]
     Active Substance: SOFOSBUVIR
     Route: 048
     Dates: start: 20150201

REACTIONS (5)
  - Oedema peripheral [None]
  - Erythema multiforme [None]
  - Erythema [None]
  - Myalgia [None]
  - Skin exfoliation [None]

NARRATIVE: CASE EVENT DATE: 20150208
